FAERS Safety Report 8827463 (Version 1)
Quarter: 2012Q4

REPORT INFORMATION
  Report Type: Report from Study
  Country: CA (occurrence: CA)
  Receive Date: 20121008
  Receipt Date: 20121008
  Transmission Date: 20130627
  Serious: Yes (Other)
  Sender: FDA-Public Use
  Company Number: CA-JNJFOC-20120912186

PATIENT
  Age: 54 Year
  Sex: Female
  Weight: 84 kg

DRUGS (4)
  1. REMICADE [Suspect]
     Indication: PSORIATIC ARTHROPATHY
     Route: 042
     Dates: start: 20101103
  2. METHOTREXATE [Concomitant]
     Route: 065
  3. OXYCODONE [Concomitant]
     Route: 065
  4. PRISTIQ [Concomitant]
     Route: 065

REACTIONS (3)
  - Fall [Recovering/Resolving]
  - Concussion [Recovered/Resolved]
  - Coccydynia [Recovering/Resolving]
